FAERS Safety Report 7068918-1 (Version None)
Quarter: 2010Q4

REPORT INFORMATION
  Report Type: 
  Country: None (occurrence: None)
  Receive Date: 20101028
  Receipt Date: 20101021
  Transmission Date: 20110411
  Serious: Yes (Other)
  Sender: FDA-Public Use
  Company Number: IT-SANOFI-AVENTIS-2010SA064455

PATIENT
  Age: 82 Year
  Sex: Male

DRUGS (1)
  1. MULTAQ [Suspect]
     Route: 048
     Dates: start: 20100901, end: 20101015

REACTIONS (1)
  - VENTRICULAR ARRHYTHMIA [None]
